FAERS Safety Report 9236052 (Version 2)
Quarter: 2013Q2

REPORT INFORMATION
  Report Type: Spontaneous
  Country: BR (occurrence: None)
  Receive Date: 20130408
  Receipt Date: 20130520
  Transmission Date: 20140414
  Serious: Yes (Other)
  Sender: FDA-Public Use
  Company Number: 2013035331

PATIENT
  Age: 29 Year
  Sex: Female

DRUGS (1)
  1. RHOPHYLAC [Suspect]
     Dosage: 300 UG, ADM 10 YEARS AGO PREGNANT FOR FIRST CHILD, 300 UG ADMINISTERED 8 YEARS AGO PREGNANT FOR SECCOND CHILD
     Route: 030

REACTIONS (2)
  - Rhesus antibodies positive [None]
  - Exposure during pregnancy [None]
